FAERS Safety Report 6782620-2 (Version None)
Quarter: 2010Q2

REPORT INFORMATION
  Report Type: 
  Country: None (occurrence: None)
  Receive Date: 20100621
  Receipt Date: 20100615
  Transmission Date: 20101027
  Serious: Yes (Other)
  Sender: FDA-Public Use
  Company Number: AU-BRISTOL-MYERS SQUIBB COMPANY-15150451

PATIENT
  Age: 5 Decade
  Sex: Male

DRUGS (2)
  1. ABILIFY [Suspect]
     Dosage: STARTED SIX MONTHS AGO
  2. ENDONE [Concomitant]
     Dosage: PATCHES

REACTIONS (2)
  - RETINAL INJURY [None]
  - VISUAL ACUITY REDUCED [None]
